FAERS Safety Report 8358431-3 (Version None)
Quarter: 2012Q2

REPORT INFORMATION
  Report Type: 
  Country: None (occurrence: None)
  Receive Date: 20120514
  Receipt Date: 20110909
  Transmission Date: 20120825
  Serious: No
  Sender: FDA-Public Use
  Company Number: US-TEVA-2011004777

PATIENT
  Sex: Female
  Weight: 88.53 kg

DRUGS (2)
  1. EFFEXOR XR [Concomitant]
     Dates: start: 20040101
  2. NUVIGIL [Suspect]
     Indication: NARCOLEPSY
     Dosage: 150 MILLIGRAM;
     Route: 048
     Dates: start: 20110701

REACTIONS (1)
  - MIDDLE INSOMNIA [None]
